FAERS Safety Report 8265876-9 (Version None)
Quarter: 2012Q2

REPORT INFORMATION
  Report Type: 
  Country: None (occurrence: None)
  Receive Date: 20120406
  Receipt Date: 20120402
  Transmission Date: 20120825
  Serious: Yes (Hospitalization)
  Sender: FDA-Public Use
  Company Number: GB-GLAXOSMITHKLINE-B0778698A

PATIENT
  Age: 52 Year
  Sex: Female

DRUGS (9)
  1. CLOZAPINE [Suspect]
     Route: 048
     Dates: start: 20110204, end: 20111213
  2. LORAZEPAM [Concomitant]
     Dosage: 2MG PER DAY
     Route: 048
  3. CLOZAPINE [Suspect]
     Route: 048
     Dates: start: 20120123
  4. VALPROATE SODIUM [Concomitant]
     Indication: BIPOLAR DISORDER
     Dosage: 600MG PER DAY
     Route: 048
  5. HYDROXYCHLOROQUINE SULFATE [Concomitant]
     Indication: RHEUMATOID ARTHRITIS
     Dosage: 200MG PER DAY
     Route: 048
  6. ALBUTEROL [Concomitant]
  7. PAROXETINE [Suspect]
  8. FOLIC ACID [Concomitant]
     Indication: RHEUMATOID ARTHRITIS
     Dosage: 5MG PER DAY
     Route: 048
  9. ACETAMINOPHEN [Concomitant]
     Dosage: 4G PER DAY
     Route: 048

REACTIONS (6)
  - ATONIC SEIZURES [None]
  - DRUG LEVEL INCREASED [None]
  - DYSARTHRIA [None]
  - DYSTONIA [None]
  - TOXICITY TO VARIOUS AGENTS [None]
  - DRUG INTERACTION [None]
